FAERS Safety Report 8858244 (Version 1)
Quarter: 2012Q4

REPORT INFORMATION
  Report Type: 
  Country: US (occurrence: US)
  Receive Date: 20121024
  Receipt Date: 20121024
  Transmission Date: 20130627
  Serious: No
  Sender: FDA-Public Use
  Company Number: US-AMGEN-USASP2011068989

PATIENT
  Age: 73 Year
  Sex: Female
  Weight: 58.96 kg

DRUGS (10)
  1. ENBREL [Suspect]
     Indication: PRODUCT USED FOR UNKNOWN INDICATION
     Dosage: 50 mg, qwk
     Route: 058
  2. ZOCOR [Concomitant]
     Dosage: 20 mg, UNK
     Route: 048
  3. FOSAMAX [Concomitant]
     Dosage: 10 mg, UNK
     Route: 048
  4. PROTONIX [Concomitant]
     Dosage: 20 mg, UNK
     Route: 048
  5. NORVASC [Concomitant]
     Dosage: 5 mg, UNK
     Route: 048
  6. IMURAN                             /00001501/ [Concomitant]
     Dosage: 50 mg, UNK
     Route: 048
  7. ZESTRIL [Concomitant]
     Dosage: 10 mg, UNK
     Route: 048
  8. METOPROLOL [Concomitant]
     Dosage: 25 mg, UNK
     Route: 048
  9. CELEXA                             /00582602/ [Concomitant]
     Dosage: 10 mg, UNK
     Route: 048
  10. NYSTATIN [Concomitant]
     Dosage: UNK
     Route: 048

REACTIONS (1)
  - Infected bites [Unknown]
